FAERS Safety Report 7701847-6 (Version None)
Quarter: 2011Q3

REPORT INFORMATION
  Report Type: 
  Country: None (occurrence: None)
  Receive Date: 20110822
  Receipt Date: 20110811
  Transmission Date: 20111222
  Serious: Yes (Hospitalization)
  Sender: FDA-Public Use
  Company Number: US-JNJFOC-20110308039

PATIENT
  Sex: Male

DRUGS (4)
  1. REMICADE [Suspect]
     Dosage: TOTAL 5 DOSES
     Route: 042
     Dates: start: 20040521
  2. REMICADE [Suspect]
     Indication: COLITIS
     Route: 042
     Dates: start: 20040406
  3. REMICADE [Suspect]
     Indication: COLITIS ULCERATIVE
     Route: 042
     Dates: start: 20040406
  4. REMICADE [Suspect]
     Dosage: TOTAL 5 DOSES
     Route: 042
     Dates: start: 20040521

REACTIONS (5)
  - UNEVALUABLE EVENT [None]
  - VOMITING [None]
  - DEHYDRATION [None]
  - ABDOMINAL PAIN [None]
  - NAUSEA [None]
